FAERS Safety Report 8147690-8 (Version None)
Quarter: 2012Q1

REPORT INFORMATION
  Report Type: 
  Country: None (occurrence: None)
  Receive Date: 20120218
  Receipt Date: 20110308
  Transmission Date: 20120608
  Serious: No
  Sender: FDA-Public Use
  Company Number: US-ALLERGAN-1103296US

PATIENT
  Age: 61 Year
  Sex: Female

DRUGS (2)
  1. BOTOX COSMETIC [Suspect]
     Indication: SKIN WRINKLING
     Dosage: UNK
     Route: 030
     Dates: start: 20101205, end: 20101205
  2. BOTOX COSMETIC [Suspect]
     Dosage: UNK
     Route: 030
     Dates: start: 20101217, end: 20101217

REACTIONS (10)
  - BLEPHAROCHALASIS [None]
  - EYE SWELLING [None]
  - SKIN FISSURES [None]
  - ERYTHEMA [None]
  - SKIN IRRITATION [None]
  - VISION BLURRED [None]
  - DRY SKIN [None]
  - DRUG INEFFECTIVE [None]
  - OCULAR HYPERAEMIA [None]
  - SWELLING FACE [None]
